FAERS Safety Report 8788595 (Version 3)
Quarter: 2013Q1

REPORT INFORMATION
  Report Type: Report from Study
  Country: US (occurrence: US)
  Receive Date: 20120914
  Receipt Date: 20130110
  Transmission Date: 20140127
  Serious: Yes (Other)
  Sender: FDA-Public Use
  Company Number: US-VERTEX PHARMACEUTICAL INC.-AE-2012-008582

PATIENT
  Age: 46 Year
  Sex: Female

DRUGS (4)
  1. VX-950 (TELAPREVIR) [Suspect]
     Indication: HEPATITIS C
     Dosage: 750 MG, TID
     Route: 048
     Dates: start: 20120523, end: 20120815
  2. PEGASYS [Suspect]
     Indication: CHRONIC HEPATITIS C
     Dosage: 180 ?G, UNK
     Route: 058
     Dates: start: 20120523
  3. RIBAVIRIN [Suspect]
     Indication: CHRONIC HEPATITIS C
     Dosage: 600 MG, BID
     Route: 048
     Dates: start: 20120523
  4. RIBAVIRIN [Suspect]
     Dosage: 400 MG, UNK

REACTIONS (8)
  - Anaemia [Not Recovered/Not Resolved]
  - White blood cell count decreased [Not Recovered/Not Resolved]
  - Dyspnoea [Not Recovered/Not Resolved]
  - Asthenia [Not Recovered/Not Resolved]
  - Fatigue [Not Recovered/Not Resolved]
  - Rash [Unknown]
  - Diarrhoea [Not Recovered/Not Resolved]
  - Nausea [Not Recovered/Not Resolved]
